FAERS Safety Report 20037358 (Version 1)
Quarter: 2021Q4

REPORT INFORMATION
  Report Type: Spontaneous
  Country: ES (occurrence: ES)
  Receive Date: 20211105
  Receipt Date: 20211105
  Transmission Date: 20220303
  Serious: Yes (Other)
  Sender: FDA-Public Use
  Company Number: ES-GLAXOSMITHKLINE-ES2021GSK223927

PATIENT

DRUGS (10)
  1. LEVOTHYROXINE [Suspect]
     Active Substance: LEVOTHYROXINE
     Indication: Product used for unknown indication
     Dosage: UNK (AS NEEDED)
     Route: 064
  2. ALBUTEROL [Suspect]
     Active Substance: ALBUTEROL
     Indication: Product used for unknown indication
     Dosage: UNK (AS NEEDED)
     Route: 064
  3. ASPIRIN [Suspect]
     Active Substance: ASPIRIN
     Indication: Product used for unknown indication
     Dosage: UNK
     Route: 064
  4. BUDESONIDE\FORMOTEROL [Suspect]
     Active Substance: BUDESONIDE\FORMOTEROL
     Indication: Product used for unknown indication
     Dosage: UNK (AS NEEDED)
     Route: 064
  5. FOLIC ACID [Suspect]
     Active Substance: FOLIC ACID
     Indication: Product used for unknown indication
     Dosage: UNK
     Route: 064
  6. PREDNISONE [Suspect]
     Active Substance: PREDNISONE
     Indication: Skin induration
     Dosage: UNK
     Route: 064
  7. PREDNISONE [Suspect]
     Active Substance: PREDNISONE
     Indication: Scleroderma-like reaction
     Dosage: 60 MG
     Route: 064
  8. PREDNISONE [Suspect]
     Active Substance: PREDNISONE
     Indication: Joint stabilisation
  9. PREDNISONE [Suspect]
     Active Substance: PREDNISONE
     Indication: Muscle disorder
  10. LABETALOL [Suspect]
     Active Substance: LABETALOL\LABETALOL HYDROCHLORIDE
     Indication: Hypertension
     Dosage: UNK
     Route: 064

REACTIONS (3)
  - Foetal growth restriction [Unknown]
  - Premature baby [Unknown]
  - Foetal exposure during pregnancy [Unknown]
